FAERS Safety Report 16381425 (Version 1)
Quarter: 2019Q2

REPORT INFORMATION
  Report Type: Spontaneous
  Country: US (occurrence: US)
  Receive Date: 20190603
  Receipt Date: 20190603
  Transmission Date: 20190711
  Serious: No
  Sender: FDA-Public Use
  Company Number: US-SHIRE-US201917784

PATIENT
  Age: 46 Year
  Sex: Female

DRUGS (1)
  1. XIIDRA [Suspect]
     Active Substance: LIFITEGRAST
     Indication: DRY EYE
     Dosage: 1 GTT DROPS, 2X/DAY:BID
     Route: 047
     Dates: start: 201905

REACTIONS (5)
  - Instillation site irritation [Unknown]
  - Instillation site discomfort [Unknown]
  - Instillation site reaction [Unknown]
  - Taste disorder [Unknown]
  - Vision blurred [Unknown]

NARRATIVE: CASE EVENT DATE: 201905
